FAERS Safety Report 13777862 (Version 1)
Quarter: 2017Q3

REPORT INFORMATION
  Report Type: Other
  Country: NO (occurrence: NO)
  Receive Date: 20170721
  Receipt Date: 20170721
  Transmission Date: 20171127
  Serious: Yes (Hospitalization)
  Sender: FDA-Public Use
  Company Number: NO-GE HEALTHCARE LIFE SCIENCES-2017CSU002146

PATIENT

DRUGS (1)
  1. OMNIPAQUE [Suspect]
     Active Substance: IOHEXOL
     Indication: PRODUCT USED FOR UNKNOWN INDICATION
     Dosage: 75 ML, SINGLE
     Route: 065
     Dates: start: 20170707, end: 20170707

REACTIONS (3)
  - Blister [Unknown]
  - Rash erythematous [Unknown]
  - Vomiting [Unknown]

NARRATIVE: CASE EVENT DATE: 20170707
